FAERS Safety Report 9187309 (Version 1)
Quarter: 2013Q1

REPORT INFORMATION
  Report Type: Report from Study
  Country: US (occurrence: US)
  Receive Date: 20130325
  Receipt Date: 20130325
  Transmission Date: 20140127
  Serious: Yes (Other)
  Sender: FDA-Public Use
  Company Number: US-ROCHE-1204270

PATIENT
  Sex: 0

DRUGS (1)
  1. BEVACIZUMAB [Suspect]
     Indication: METASTATIC RENAL CELL CARCINOMA
     Dosage: 10 MG/KG EVERY 2 WEEKS OR 15 MG/KG EVERY 3 WEEKS
     Route: 065

REACTIONS (16)
  - Failure to thrive [Unknown]
  - Fatigue [Unknown]
  - Constipation [Unknown]
  - Muscular weakness [Unknown]
  - Dehydration [Unknown]
  - Hypertension [Unknown]
  - Embolism [Unknown]
  - Haemorrhage [Unknown]
  - Wound complication [Unknown]
  - Proteinuria [Unknown]
  - Epistaxis [Unknown]
  - Headache [Unknown]
  - Rhinitis [Unknown]
  - Dysgeusia [Unknown]
  - Back pain [Unknown]
  - Dermatitis exfoliative [Unknown]
